FAERS Safety Report 8696871 (Version 2)
Quarter: 2012Q4

REPORT INFORMATION
  Report Type: 
  Country: JP (occurrence: JP)
  Receive Date: 20120801
  Receipt Date: 20121101
  Transmission Date: 20130627
  Serious: Yes (Other)
  Sender: FDA-Public Use
  Company Number: JP-PFIZER INC-2012184355

PATIENT
  Age: 60 Year
  Sex: Male

DRUGS (1)
  1. ANCARON [Suspect]
     Indication: ATRIAL FIBRILLATION
     Dosage: 200 mg, daily
     Route: 048
     Dates: start: 20061023, end: 20061030

REACTIONS (1)
  - Device pacing issue [Recovered/Resolved]
